FAERS Safety Report 9867465 (Version 3)
Quarter: 2014Q1

REPORT INFORMATION
  Report Type: Report from Study
  Country: FR (occurrence: FR)
  Receive Date: 20140204
  Receipt Date: 20140305
  Transmission Date: 20141002
  Serious: No
  Sender: FDA-Public Use
  Company Number: PHHY2014FR012332

PATIENT
  Age: 75 Year
  Sex: 0
  Weight: 76 kg

DRUGS (1)
  1. EXELON [Suspect]
     Dosage: 4.6 MG PER 24 HOURS
     Route: 062
     Dates: start: 20130618

REACTIONS (2)
  - Wound infection [Not Recovered/Not Resolved]
  - Pruritus [Not Recovered/Not Resolved]
